FAERS Safety Report 26137137 (Version 2)
Quarter: 2025Q4

REPORT INFORMATION
  Report Type: Spontaneous
  Country: JP (occurrence: JP)
  Receive Date: 20251209
  Receipt Date: 20251226
  Transmission Date: 20260117
  Serious: Yes (Hospitalization, Other)
  Sender: KYOWA
  Company Number: JP-KYOWAKIRIN-2025KK023127

PATIENT

DRUGS (4)
  1. POTELIGEO [Suspect]
     Active Substance: MOGAMULIZUMAB-KPKC
     Indication: Cutaneous T-cell lymphoma stage IV
     Dosage: UNK, POTELIGEO WAS DISCONTINUED IN 2 TO 3 MONTHS.
     Route: 065
  2. ETRETINATE [Concomitant]
     Active Substance: ETRETINATE
     Indication: Cutaneous T-cell lymphoma stage IV
     Dosage: 25 MG
     Route: 065
  3. ETOPOSIDE [Concomitant]
     Active Substance: ETOPOSIDE
     Indication: Cutaneous T-cell lymphoma stage IV
     Dosage: UNK
     Route: 065
  4. BEXAROTENE [Concomitant]
     Active Substance: BEXAROTENE
     Indication: Cutaneous T-cell lymphoma stage IV
     Dosage: UNK
     Route: 065

REACTIONS (2)
  - Enterocolitis [Not Recovered/Not Resolved]
  - Pyrexia [Not Recovered/Not Resolved]
